FAERS Safety Report 7536283-9 (Version None)
Quarter: 2011Q2

REPORT INFORMATION
  Report Type: 
  Country: None (occurrence: None)
  Receive Date: 20110602
  Receipt Date: 20110523
  Transmission Date: 20111010
  Serious: Yes (Other)
  Sender: FDA-Public Use
  Company Number: 20110425

PATIENT
  Age: 49 Year
  Sex: Male
  Weight: 60 kg

DRUGS (7)
  1. VENOFER [Suspect]
     Indication: IRON DEFICIENCY
     Dosage: NS-4.5 HRS INTRAVENOUS DRIP
     Route: 041
     Dates: start: 20110427, end: 20110427
  2. OMEPRAZOLE [Concomitant]
  3. LOPERAMIDE [Concomitant]
  4. FOLIC ACID [Concomitant]
  5. 0.9% NORMAL SALINE [Concomitant]
  6. CODEINE SULFATE [Concomitant]
  7. COSMOFER (IRON DEXTRAN) [Concomitant]

REACTIONS (3)
  - JOINT SWELLING [None]
  - WRONG DRUG ADMINISTERED [None]
  - OVERDOSE [None]
